FAERS Safety Report 5353941-5 (Version None)
Quarter: 2007Q2

REPORT INFORMATION
  Report Type: 
  Country: None (occurrence: None)
  Receive Date: 20070608
  Receipt Date: 20070608
  Transmission Date: 20071010
  Serious: Yes (Life-Threatening, Hospitalization)
  Sender: FDA-Public Use
  Company Number: None

PATIENT
  Age: 54 Year
  Sex: Male

DRUGS (15)
  1. WARFARIN [Suspect]
     Indication: ATRIAL FIBRILLATION
     Dosage: PO
     Route: 048
  2. CLONAZEPAM [Concomitant]
  3. WARFARIN [Concomitant]
  4. DILTIAZEM [Concomitant]
  5. TRAMADOL HCL [Concomitant]
  6. DIGOXIN [Concomitant]
  7. MIRTAZAPINE [Concomitant]
  8. LISINOPRIL [Concomitant]
  9. CYMBALTA [Concomitant]
  10. LASIX [Concomitant]
  11. DIOVAN [Concomitant]
  12. ACIPHEX [Concomitant]
  13. LANTUS [Concomitant]
  14. CIPROFLOXACIN [Concomitant]
  15. STARLIX [Concomitant]

REACTIONS (5)
  - COAGULOPATHY [None]
  - DIZZINESS [None]
  - DYSARTHRIA [None]
  - HAEMORRHAGE INTRACRANIAL [None]
  - SEDATION [None]
